FAERS Safety Report 13784114 (Version 1)
Quarter: 2017Q3

REPORT INFORMATION
  Report Type: Report from Study
  Country: US (occurrence: US)
  Receive Date: 20170724
  Receipt Date: 20170724
  Transmission Date: 20171127
  Serious: Yes (Hospitalization)
  Sender: FDA-Public Use
  Company Number: US-TAIHO ONCOLOGY INC-EU-2017-01013

PATIENT
  Age: 70 Year
  Sex: Male
  Weight: 113.5 kg

DRUGS (9)
  1. DILTIAZEM. [Concomitant]
     Active Substance: DILTIAZEM
     Dosage: NI
  2. FUROSEMIDE. [Concomitant]
     Active Substance: FUROSEMIDE
     Dosage: NI
  3. POTASSIUM [Concomitant]
     Active Substance: POTASSIUM
     Dosage: NI
  4. DIGOXIN. [Concomitant]
     Active Substance: DIGOXIN
     Dosage: NI
  5. MAGNESIUM [Concomitant]
     Active Substance: MAGNESIUM
     Indication: SUPPLEMENTATION THERAPY
     Dosage: NI
  6. ACICLOVIR [Concomitant]
     Active Substance: ACYCLOVIR
  7. PANTOPRAZOLE [Concomitant]
     Active Substance: PANTOPRAZOLE
     Dosage: NI
  8. LEVOTHYROXINE. [Concomitant]
     Active Substance: LEVOTHYROXINE
     Dosage: NI
  9. LONSURF [Suspect]
     Active Substance: TIPIRACIL HYDROCHLORIDE\TRIFLURIDINE
     Indication: COLON CANCER METASTATIC
     Dosage: DOSAGE UNKNOWN, CURRENT CYCLE STARTED 20/JUN/2017
     Route: 048
     Dates: end: 20170704

REACTIONS (8)
  - Asthenia [Recovering/Resolving]
  - Loss of consciousness [Unknown]
  - Platelet count decreased [Unknown]
  - Immobile [Unknown]
  - Blood blister [Unknown]
  - Petechiae [Unknown]
  - Herpes zoster [Unknown]
  - Haematoma [Unknown]

NARRATIVE: CASE EVENT DATE: 201707
